FAERS Safety Report 7937712-9 (Version None)
Quarter: 2011Q4

REPORT INFORMATION
  Report Type: 
  Country: None (occurrence: None)
  Receive Date: 20111123
  Receipt Date: 20111116
  Transmission Date: 20120403
  Serious: Yes (Other)
  Sender: FDA-Public Use
  Company Number: PHEH2011US03394

PATIENT
  Sex: Female
  Weight: 59.864 kg

DRUGS (6)
  1. GILENYA [Suspect]
     Indication: MULTIPLE SCLEROSIS
     Dosage: 0.5 MG, QD
     Route: 048
     Dates: start: 20110820
  2. VITAMIN D [Concomitant]
     Dosage: 1000 U, UNK
  3. CALCIUM 600 TAB + D [Concomitant]
     Dosage: 600 MG, UNK
  4. GILENYA [Suspect]
     Dosage: 0.5 MG, QD
     Route: 048
  5. GILENYA [Suspect]
     Dosage: 0.5 MG, QD
     Route: 048
     Dates: start: 20110830
  6. NAPROXEN (ALEVE) [Concomitant]
     Dosage: 220 MG, UNK

REACTIONS (7)
  - FATIGUE [None]
  - HEADACHE [None]
  - ANGIOEDEMA [None]
  - RASH GENERALISED [None]
  - ERYTHEMA [None]
  - RASH PRURITIC [None]
  - SWELLING [None]
